FAERS Safety Report 11610632 (Version 1)
Quarter: 2015Q4

REPORT INFORMATION
  Report Type: Spontaneous
  Country: US (occurrence: None)
  Receive Date: 20151007
  Receipt Date: 20151007
  Transmission Date: 20160304
  Serious: No
  Sender: FDA-Public Use
  Company Number: None

PATIENT
  Age: 72 Year
  Sex: Male

DRUGS (22)
  1. FLUOCINONIDE. [Concomitant]
     Active Substance: FLUOCINONIDE
  2. PREDNISONE. [Concomitant]
     Active Substance: PREDNISONE
  3. TRIAMTERENE. [Concomitant]
     Active Substance: TRIAMTERENE
  4. BABY ASPIRIN [Concomitant]
     Active Substance: ASPIRIN
  5. TRIAM/HCTZ [Concomitant]
  6. GLEEVEC [Suspect]
     Active Substance: IMATINIB MESYLATE
     Indication: BLADDER NEOPLASM
     Route: 048
     Dates: start: 20071211
  7. AMOXICILLIN. [Concomitant]
     Active Substance: AMOXICILLIN
  8. VITAMIN B-1 [Concomitant]
  9. AMIODARONE [Concomitant]
     Active Substance: AMIODARONE
  10. AMLODIPINE [Concomitant]
     Active Substance: AMLODIPINE BESYLATE
  11. PEG-3350/KCL SOL/SODIUM [Concomitant]
  12. CLOBETASOL [Concomitant]
     Active Substance: CLOBETASOL
  13. OXYCODONE [Concomitant]
     Active Substance: OXYCODONE
  14. ST JOSEPH ASPIRIN CHW [Concomitant]
  15. ISONIAZID. [Concomitant]
     Active Substance: ISONIAZID
  16. LISINOPRIL AND HYDROCHLOROTHIAZIDE [Concomitant]
     Active Substance: HYDROCHLOROTHIAZIDE\LISINOPRIL
  17. VITAMIN E [Concomitant]
     Active Substance: .ALPHA.-TOCOPHEROL
  18. CALCIUM [Concomitant]
     Active Substance: CALCIUM
  19. ETHAMBUTOL [Concomitant]
     Active Substance: ETHAMBUTOL HYDROCHLORIDE
  20. LEVOFLOXACIN. [Concomitant]
     Active Substance: LEVOFLOXACIN
  21. MULTIVITAMIN [Concomitant]
     Active Substance: VITAMINS
  22. RIFAMPIN. [Concomitant]
     Active Substance: RIFAMPIN

REACTIONS (2)
  - Sepsis [None]
  - Infection [None]

NARRATIVE: CASE EVENT DATE: 201509
